FAERS Safety Report 14239709 (Version 1)
Quarter: 2017Q4

REPORT INFORMATION
  Report Type: Spontaneous
  Country: DK (occurrence: DK)
  Receive Date: 20171130
  Receipt Date: 20171130
  Transmission Date: 20180321
  Serious: Yes (Other)
  Sender: FDA-Public Use
  Company Number: DK-GLAXOSMITHKLINE-DK2017GSK090848

PATIENT
  Age: 47 Year
  Sex: Female

DRUGS (2)
  1. VENTOLINE [Suspect]
     Active Substance: ALBUTEROL
     Indication: MUSCULAR WEAKNESS
     Dosage: 4 MG, TID
     Dates: start: 201307
  2. MESTINON [Concomitant]
     Active Substance: PYRIDOSTIGMINE BROMIDE
     Indication: MUSCULAR WEAKNESS
     Dosage: UNK
     Dates: start: 201107, end: 201307

REACTIONS (4)
  - Blood potassium decreased [Unknown]
  - Product use in unapproved indication [Unknown]
  - Off label use [Unknown]
  - Drug dependence [Unknown]

NARRATIVE: CASE EVENT DATE: 201307
